FAERS Safety Report 5388531-1 (Version None)
Quarter: 2007Q3

REPORT INFORMATION
  Report Type: 
  Country: None (occurrence: None)
  Receive Date: 20070716
  Receipt Date: 20070704
  Transmission Date: 20080115
  Serious: Yes (Other)
  Sender: FDA-Public Use
  Company Number: GB-PFIZER INC-2007056194

PATIENT
  Age: 51 Year
  Sex: Female

DRUGS (1)
  1. CHAMPIX [Suspect]
     Route: 048

REACTIONS (5)
  - CONFUSIONAL STATE [None]
  - HEADACHE [None]
  - IMPAIRED DRIVING ABILITY [None]
  - NAUSEA [None]
  - PALPITATIONS [None]
